FAERS Safety Report 23913220 (Version 1)
Quarter: 2024Q2

REPORT INFORMATION
  Report Type: Report from Study
  Country: FR (occurrence: FR)
  Receive Date: 20240529
  Receipt Date: 20240529
  Transmission Date: 20240716
  Serious: Yes (Hospitalization, Other)
  Sender: FDA-Public Use
  Company Number: FR-Merck Healthcare KGaA-2024028045

PATIENT
  Sex: Male

DRUGS (1)
  1. METFORMIN [Suspect]
     Active Substance: METFORMIN HYDROCHLORIDE
     Indication: Diabetes mellitus

REACTIONS (15)
  - Memory impairment [Unknown]
  - Dementia Alzheimer^s type [Unknown]
  - Cerebrovascular accident [Unknown]
  - Hallucination, visual [Unknown]
  - Incoherent [Unknown]
  - Fatigue [Unknown]
  - Pallor [Unknown]
  - Fatal familial insomnia [Unknown]
  - Insomnia [Unknown]
  - Staring [Unknown]
  - Loss of personal independence in daily activities [Unknown]
  - Motor dysfunction [Unknown]
  - Cold sweat [Unknown]
  - Muscle spasms [Unknown]
  - Miosis [Unknown]
